FAERS Safety Report 15721159 (Version 2)
Quarter: 2019Q1

REPORT INFORMATION
  Report Type: Spontaneous
  Country: US (occurrence: US)
  Receive Date: 20181214
  Receipt Date: 20190211
  Transmission Date: 20190417
  Serious: Yes (Other)
  Sender: FDA-Public Use
  Company Number: US-ABBVIE-18S-163-2520186-00

PATIENT
  Sex: Male

DRUGS (2)
  1. DUOPA [Suspect]
     Active Substance: CARBIDOPA\LEVODOPA
     Indication: PARKINSON^S DISEASE
     Dosage: 16 HOURS
     Route: 050
     Dates: start: 20170620
  2. DUOPA [Suspect]
     Active Substance: CARBIDOPA\LEVODOPA
     Dosage: 24 HOURS
     Route: 050

REACTIONS (13)
  - Limb injury [Unknown]
  - Abdominal injury [Unknown]
  - Device issue [Not Recovered/Not Resolved]
  - Device kink [Unknown]
  - Medical device discomfort [Unknown]
  - Stoma site irritation [Unknown]
  - Stoma site reaction [Unknown]
  - Medication error [Unknown]
  - Tremor [Unknown]
  - Device dislocation [Unknown]
  - Stoma site pain [Unknown]
  - Skin irritation [Unknown]
  - Medical device discomfort [Not Recovered/Not Resolved]

NARRATIVE: CASE EVENT DATE: 2018
